FAERS Safety Report 5969432-4 (Version None)
Quarter: 2008Q4

REPORT INFORMATION
  Report Type: 
  Country: None (occurrence: None)
  Receive Date: 20081126
  Receipt Date: 20080830
  Transmission Date: 20090506
  Serious: No
  Sender: FDA-Public Use
  Company Number: US-ABBOTT-08P-163-0473533-00

PATIENT
  Sex: Female
  Weight: 79.45 kg

DRUGS (4)
  1. SIMCOR [Suspect]
     Indication: BLOOD TRIGLYCERIDES INCREASED
     Dosage: ONE TABLET AT NIGHT
     Route: 048
     Dates: start: 20080722, end: 20080821
  2. ATENOLOL [Concomitant]
     Indication: BLOOD PRESSURE
     Route: 048
  3. SPIROLACTONE [Concomitant]
     Indication: BLOOD PRESSURE
     Route: 048
  4. IRBESARTAN [Concomitant]
     Indication: BLOOD PRESSURE
     Route: 048

REACTIONS (4)
  - BURNING SENSATION [None]
  - ERYTHEMA [None]
  - FEELING JITTERY [None]
  - PRURITUS [None]
